FAERS Safety Report 5676132-7 (Version None)
Quarter: 2008Q1

REPORT INFORMATION
  Report Type: 
  Country: None (occurrence: None)
  Receive Date: 20080321
  Receipt Date: 20080318
  Transmission Date: 20080703
  Serious: Yes (Other)
  Sender: FDA-Public Use
  Company Number: US-TEVA-168945USA

PATIENT
  Age: 30 Year
  Sex: Female

DRUGS (5)
  1. COPAXONE [Suspect]
     Indication: MULTIPLE SCLEROSIS
     Route: 058
  2. BUPROPION HCL [Concomitant]
  3. PREGABALIN [Concomitant]
  4. HYDROMORPHONE HYDROCHLORIDE [Concomitant]
  5. OPANA [Concomitant]

REACTIONS (1)
  - RHABDOMYOLYSIS [None]
